FAERS Safety Report 9730735 (Version 1)
Quarter: 2013Q4

REPORT INFORMATION
  Report Type: Report from Study
  Country: IT (occurrence: IT)
  Receive Date: 20131205
  Receipt Date: 20131205
  Transmission Date: 20140711
  Serious: Yes (Other)
  Sender: FDA-Public Use
  Company Number: IT-ROCHE-1313268

PATIENT
  Sex: 0

DRUGS (1)
  1. ENFUVIRTIDE [Suspect]
     Indication: HIV INFECTION
     Route: 065

REACTIONS (2)
  - Cytomegalovirus infection [Unknown]
  - Oral candidiasis [Unknown]
